FAERS Safety Report 9284767 (Version 1)
Quarter: 2013Q2

REPORT INFORMATION
  Report Type: Report from Study
  Country: DE (occurrence: DE)
  Receive Date: 20130513
  Receipt Date: 20130513
  Transmission Date: 20140414
  Serious: Yes (Hospitalization)
  Sender: FDA-Public Use
  Company Number: DE-ROCHE-1221395

PATIENT
  Age: 71 Year
  Sex: Female
  Weight: 56 kg

DRUGS (5)
  1. RITUXIMAB [Suspect]
     Indication: CHRONIC LYMPHOCYTIC LEUKAEMIA
     Dosage: DATE OF LAST DOSE PRIOR TO SAE: 17/NOV/2009
     Route: 042
     Dates: start: 20090818
  2. RITUXIMAB [Suspect]
     Dosage: DATE OF LAST DOSE PRIOR TO SAE: 17/NOV/2009
     Route: 042
     Dates: start: 20090820
  3. BENDAMUSTINE [Suspect]
     Indication: CHRONIC LYMPHOCYTIC LEUKAEMIA
     Dosage: DATE OF LAST DOSE PRIOR TO SAE: 19/NOV/2009
     Route: 042
     Dates: start: 20090819
  4. BENDAMUSTINE [Suspect]
     Dosage: DATE OF LAST DOSE PRIOR TO SAE: 19/NOV/2009
     Route: 042
     Dates: start: 20090821
  5. NACL .9% [Concomitant]

REACTIONS (5)
  - Gastrointestinal toxicity [Recovered/Resolved]
  - Vomiting [Recovered/Resolved]
  - Abdominal discomfort [Recovered/Resolved]
  - Nausea [Recovered/Resolved]
  - Infusion related reaction [Recovered/Resolved]
